FAERS Safety Report 6828460-7 (Version None)
Quarter: 2010Q3

REPORT INFORMATION
  Report Type: 
  Country: None (occurrence: None)
  Receive Date: 20100709
  Receipt Date: 20070210
  Transmission Date: 20110219
  Serious: No
  Sender: FDA-Public Use
  Company Number: US-PFIZER INC-2007011822

PATIENT
  Sex: Male
  Weight: 74.84 kg

DRUGS (5)
  1. CHANTIX [Suspect]
     Indication: SMOKING CESSATION THERAPY
     Route: 048
     Dates: start: 20070118
  2. ZOCOR [Concomitant]
  3. VALSARTAN [Concomitant]
  4. METOPROLOL [Concomitant]
  5. CYMBALTA [Concomitant]

REACTIONS (1)
  - INSOMNIA [None]
